FAERS Safety Report 16723874 (Version 1)
Quarter: 2019Q3

REPORT INFORMATION
  Report Type: Spontaneous
  Country: US (occurrence: US)
  Receive Date: 20190703
  Receipt Date: 20190703
  Transmission Date: 20191005
  Serious: Yes (Hospitalization)
  Sender: FDA-Public Use
  Company Number: None

PATIENT
  Age: 57 Year
  Sex: Male

DRUGS (16)
  1. GABAPENTIN. [Concomitant]
     Active Substance: GABAPENTIN
  2. NORCO [Concomitant]
     Active Substance: ACETAMINOPHEN\HYDROCODONE BITARTRATE
  3. VENTOLIN [Concomitant]
     Active Substance: ALBUTEROL SULFATE
  4. ACETAMIN [Concomitant]
     Active Substance: ACETAMINOPHEN
  5. METHOTREXATE. [Concomitant]
     Active Substance: METHOTREXATE
  6. CELECOXIB. [Concomitant]
     Active Substance: CELECOXIB
  7. LYRICA [Concomitant]
     Active Substance: PREGABALIN
  8. MELOXICAM. [Concomitant]
     Active Substance: MELOXICAM
  9. OXYCODONE [Concomitant]
     Active Substance: OXYCODONE
  10. POLYETH GLYCOL [Concomitant]
  11. DULOXETINE. [Concomitant]
     Active Substance: DULOXETINE
  12. ORPHENADRINE [Concomitant]
     Active Substance: ORPHENADRINE
  13. MIDODRINE [Concomitant]
     Active Substance: MIDODRINE
  14. VITAMIN D3 [Suspect]
     Active Substance: CHOLECALCIFEROL
  15. HUMIRA [Suspect]
     Active Substance: ADALIMUMAB
     Indication: RHEUMATOID ARTHRITIS
     Route: 058
     Dates: start: 20190418
  16. ASPIRIN. [Concomitant]
     Active Substance: ASPIRIN

REACTIONS (1)
  - Hip arthroplasty [None]
